FAERS Safety Report 21575357 (Version 4)
Quarter: 2022Q4

REPORT INFORMATION
  Report Type: Report from Study
  Country: US (occurrence: US)
  Receive Date: 20221110
  Receipt Date: 20221116
  Transmission Date: 20230113
  Serious: Yes (Hospitalization)
  Sender: FDA-Public Use
  Company Number: US-ABBVIE-4194158

PATIENT
  Age: 65 Year
  Sex: Male

DRUGS (3)
  1. SKYRIZI [Suspect]
     Active Substance: RISANKIZUMAB-RZAA
     Indication: Psoriasis
     Dosage: FORM STRENGTH WAS 150 MILLIGRAMS
     Route: 058
     Dates: start: 20210503
  2. SKYRIZI [Suspect]
     Active Substance: RISANKIZUMAB-RZAA
     Indication: Psoriasis
  3. MODERNA COVID-19 VACCINE [Concomitant]
     Active Substance: ELASOMERAN
     Indication: COVID-19 immunisation
     Dosage: ONE IN ONCE
     Route: 030

REACTIONS (7)
  - Ammonia increased [Not Recovered/Not Resolved]
  - Feeling abnormal [Unknown]
  - Product storage error [Unknown]
  - Amnesia [Unknown]
  - Skin disorder [Unknown]
  - Liver disorder [Not Recovered/Not Resolved]
  - Ammonia abnormal [Unknown]

NARRATIVE: CASE EVENT DATE: 20221101
